FAERS Safety Report 5444875-6 (Version None)
Quarter: 2007Q3

REPORT INFORMATION
  Report Type: 
  Country: None (occurrence: None)
  Receive Date: 20070904
  Receipt Date: 20070904
  Transmission Date: 20080115
  Serious: Yes (Hospitalization)
  Sender: FDA-Public Use
  Company Number: None

PATIENT
  Sex: Male

DRUGS (1)
  1. HABITROL [Suspect]
     Indication: SMOKING CESSATION THERAPY
     Dosage: 21 MG   1/DAY  CUTANEOUS
     Route: 003
     Dates: start: 20070730, end: 20070801

REACTIONS (1)
  - MYOCARDIAL INFARCTION [None]
